FAERS Safety Report 10508529 (Version 1)
Quarter: 2014Q4

REPORT INFORMATION
  Report Type: Spontaneous
  Country: JP (occurrence: JP)
  Receive Date: 20141009
  Receipt Date: 20141009
  Transmission Date: 20150528
  Serious: Yes (Other)
  Sender: FDA-Public Use
  Company Number: JP-GLAXOSMITHKLINE-A201411100

PATIENT
  Age: 70 Year
  Sex: Male

DRUGS (1)
  1. FLUTICASONE PROPIONATE+SALMETEROL XINAFOATE [Suspect]
     Active Substance: FLUTICASONE PROPIONATE\SALMETEROL XINAFOATE
     Route: 055
     Dates: start: 201407, end: 201407

REACTIONS (1)
  - Respiratory failure [Recovered/Resolved]

NARRATIVE: CASE EVENT DATE: 201407
